FAERS Safety Report 8299049 (Version 3)
Quarter: 2012Q4

REPORT INFORMATION
  Report Type: 
  Country: US (occurrence: US)
  Receive Date: 20111219
  Receipt Date: 20121126
  Transmission Date: 20130627
  Serious: Yes (Hospitalization)
  Sender: FDA-Public Use
  Company Number: US-ASTRAZENECA-2011SE61181

PATIENT
  Age: 64 Year
  Sex: Female

DRUGS (2)
  1. SYMBICORT PMDI [Suspect]
     Route: 055
  2. CRESTOR [Suspect]
     Route: 048

REACTIONS (11)
  - Cyanosis [Unknown]
  - Adverse drug reaction [Unknown]
  - Arrhythmia [Unknown]
  - Heart rate increased [Unknown]
  - Wheezing [Unknown]
  - Gastric disorder [Unknown]
  - Blood cholesterol increased [Unknown]
  - Aphonia [Unknown]
  - Throat irritation [Unknown]
  - Cardiac disorder [Unknown]
  - Drug dose omission [Unknown]
